FAERS Safety Report 7038352-9 (Version None)
Quarter: 2010Q4

REPORT INFORMATION
  Report Type: 
  Country: None (occurrence: None)
  Receive Date: 20101011
  Receipt Date: 20091111
  Transmission Date: 20110411
  Serious: No
  Sender: FDA-Public Use
  Company Number: US-PFIZER INC-2009299329

PATIENT
  Sex: Female
  Weight: 67.131 kg

DRUGS (1)
  1. GABAPENTIN [Suspect]
     Indication: NEURALGIA
     Dosage: 300 MG, 1X/DAY
     Dates: start: 20090226, end: 20090301

REACTIONS (2)
  - ABDOMINAL DISTENSION [None]
  - DYSPEPSIA [None]
